FAERS Safety Report 16644124 (Version 2)
Quarter: 2019Q3

REPORT INFORMATION
  Report Type: Spontaneous
  Country: US (occurrence: US)
  Receive Date: 20190729
  Receipt Date: 20190807
  Transmission Date: 20191004
  Serious: Yes (Death, Hospitalization)
  Sender: FDA-Public Use
  Company Number: US-PFIZER INC-2019321375

PATIENT
  Age: 58 Year
  Sex: Male

DRUGS (2)
  1. DAPSONE. [Suspect]
     Active Substance: DAPSONE
     Indication: PROPHYLAXIS
     Dosage: 100 MG, DAILY
  2. SULFAMETHOXAZOLE/TRIMETHOPRIM [Suspect]
     Active Substance: SULFAMETHOXAZOLE\TRIMETHOPRIM
     Indication: PROPHYLAXIS
     Dosage: UNK, (160/800 MG)

REACTIONS (5)
  - Drug-induced liver injury [Fatal]
  - Therapeutic product cross-reactivity [Fatal]
  - Cholestasis [Fatal]
  - Vanishing bile duct syndrome [Fatal]
  - Hepatotoxicity [Fatal]
